FAERS Safety Report 6749274-2 (Version None)
Quarter: 2010Q2

REPORT INFORMATION
  Report Type: 
  Country: None (occurrence: None)
  Receive Date: 20100601
  Receipt Date: 20100519
  Transmission Date: 20101027
  Serious: Yes (Hospitalization, Other)
  Sender: FDA-Public Use
  Company Number: PHHY2010CA32523

PATIENT
  Sex: Female

DRUGS (1)
  1. ACLASTA [Suspect]
     Indication: OSTEOPOROSIS
     Dosage: UNK,UNK
     Dates: start: 20090806

REACTIONS (3)
  - CARDIAC DISORDER [None]
  - CARDIAC FAILURE CONGESTIVE [None]
  - HYPERSENSITIVITY [None]
